FAERS Safety Report 9406513 (Version 1)
Quarter: 2013Q3

REPORT INFORMATION
  Report Type: Spontaneous
  Country: US (occurrence: US)
  Receive Date: 20130718
  Receipt Date: 20130718
  Transmission Date: 20140515
  Serious: Yes (Hospitalization)
  Sender: FDA-Public Use
  Company Number: US-BRISTOL-MYERS SQUIBB COMPANY-19099597

PATIENT
  Age: 77 Year
  Sex: 0
  Weight: 54 kg

DRUGS (1)
  1. ELIQUIS [Suspect]
     Route: 048
     Dates: start: 2013

REACTIONS (5)
  - Diarrhoea [Unknown]
  - Dehydration [Unknown]
  - Cognitive disorder [Unknown]
  - Dysphagia [Unknown]
  - Medication error [Unknown]
